FAERS Safety Report 16371852 (Version 3)
Quarter: 2019Q2

REPORT INFORMATION
  Report Type: Spontaneous
  Country: JP (occurrence: JP)
  Receive Date: 20190530
  Receipt Date: 20190619
  Transmission Date: 20190711
  Serious: Yes (Other)
  Sender: FDA-Public Use
  Company Number: JP-PFIZER INC-2019228486

PATIENT
  Age: 8 Decade
  Sex: Female

DRUGS (3)
  1. VOLTAREN [Concomitant]
     Active Substance: DICLOFENAC SODIUM
     Dosage: UNK UNK, UNKNOWN FREQ.
     Route: 065
  2. CELECOX [Suspect]
     Active Substance: CELECOXIB
     Indication: RHEUMATOID ARTHRITIS
     Dosage: 100 MG, TWICE DAILY, AFTER BREAKFAST AND SUPPER
     Route: 048
  3. CELECOX [Suspect]
     Active Substance: CELECOXIB
     Dosage: 200 MG, TWICE DAILY, AFTER BREAKFAST AND SUPPER
     Route: 048

REACTIONS (2)
  - Arthritis infective [Recovering/Resolving]
  - Prescribed overdose [Unknown]

NARRATIVE: CASE EVENT DATE: 20190426
